FAERS Safety Report 25363208 (Version 2)
Quarter: 2025Q3

REPORT INFORMATION
  Report Type: Spontaneous
  Country: JP (occurrence: JP)
  Receive Date: 20250527
  Receipt Date: 20250724
  Transmission Date: 20251021
  Serious: Yes (Other)
  Sender: ELI LILLY AND COMPANY
  Company Number: JP-Merck Healthcare KGaA-2025025093

PATIENT
  Age: 60 Year
  Sex: Female

DRUGS (2)
  1. ERBITUX [Suspect]
     Active Substance: CETUXIMAB
     Indication: Appendix cancer
     Route: 041
     Dates: start: 202503
  2. IRINOTECAN [Concomitant]
     Active Substance: IRINOTECAN
     Indication: Appendix cancer
     Dates: start: 202503

REACTIONS (3)
  - Tympanic membrane perforation [Recovering/Resolving]
  - Eczema [Recovering/Resolving]
  - Dry skin [Recovering/Resolving]
